FAERS Safety Report 17026715 (Version 4)
Quarter: 2022Q2

REPORT INFORMATION
  Report Type: Report from Study
  Country: US (occurrence: US)
  Receive Date: 20191113
  Receipt Date: 20220528
  Transmission Date: 20220721
  Serious: Yes (Other)
  Sender: FDA-Public Use
  Company Number: US-NOVARTISPH-NVSC2019US034290

PATIENT
  Sex: Female

DRUGS (1)
  1. COSENTYX [Suspect]
     Active Substance: SECUKINUMAB
     Indication: Psoriasis
     Dosage: UNK
     Route: 065

REACTIONS (11)
  - Autoimmune disorder [Unknown]
  - Condition aggravated [Unknown]
  - Eye irritation [Recovered/Resolved]
  - Neck pain [Recovered/Resolved]
  - Ear pain [Recovered/Resolved]
  - Ear discomfort [Unknown]
  - Facial pain [Recovered/Resolved]
  - Eye pain [Recovered/Resolved]
  - Burning sensation [Recovered/Resolved]
  - COVID-19 [Unknown]
  - Drug titration error [Unknown]
